FAERS Safety Report 23268997 (Version 2)
Quarter: 2024Q2

REPORT INFORMATION
  Report Type: Spontaneous
  Country: CN (occurrence: CN)
  Receive Date: 20231206
  Receipt Date: 20240624
  Transmission Date: 20240716
  Serious: Yes (Hospitalization)
  Sender: FDA-Public Use
  Company Number: CN-ABBVIE-5521953

PATIENT
  Age: 64 Year
  Sex: Female
  Weight: 39 kg

DRUGS (3)
  1. VENETOCLAX [Suspect]
     Active Substance: VENETOCLAX
     Indication: Acute myeloid leukaemia
     Dosage: 100 MILLIGRAM
     Route: 048
     Dates: start: 20231025, end: 20231030
  2. STERILE WATER [Concomitant]
     Active Substance: WATER
     Indication: Vehicle solution use
     Dosage: 4 MILLILITER
     Dates: start: 20231024, end: 20231030
  3. AZACITIDINE [Concomitant]
     Active Substance: AZACITIDINE
     Indication: Acute myeloid leukaemia
     Dosage: 100 MILLIGRAM?AZACITIDINE FOR INJECTION
     Dates: start: 20231024, end: 20231030

REACTIONS (3)
  - Full blood count decreased [Recovering/Resolving]
  - Off label use [Unknown]
  - Cytopenia [Unknown]

NARRATIVE: CASE EVENT DATE: 20231025
